FAERS Safety Report 8697793 (Version 5)
Quarter: 2013Q2

REPORT INFORMATION
  Report Type: Report from Study
  Country: CA (occurrence: CA)
  Receive Date: 20120801
  Receipt Date: 20130524
  Transmission Date: 20140414
  Serious: Yes (Hospitalization, Other)
  Sender: FDA-Public Use
  Company Number: CA-UCBSA-062628

PATIENT
  Age: 62 Year
  Sex: Female
  Weight: 41 kg

DRUGS (3)
  1. CIMZIA [Suspect]
     Indication: RHEUMATOID ARTHRITIS
     Route: 058
     Dates: start: 20111202, end: 2012
  2. CIMZIA [Suspect]
     Indication: RHEUMATOID ARTHRITIS
     Route: 058
     Dates: start: 20111021, end: 20111118
  3. PREDNISONE [Concomitant]
     Indication: RHEUMATOID ARTHRITIS
     Route: 048

REACTIONS (2)
  - Invasive ductal breast carcinoma [Not Recovered/Not Resolved]
  - Postoperative wound infection [Not Recovered/Not Resolved]
